FAERS Safety Report 20663404 (Version 2)
Quarter: 2022Q2

REPORT INFORMATION
  Report Type: Report from Study
  Country: FR (occurrence: FR)
  Receive Date: 20220401
  Receipt Date: 20220510
  Transmission Date: 20220721
  Serious: Yes (Death, Hospitalization, Other)
  Sender: FDA-Public Use
  Company Number: FR-GLAXOSMITHKLINE-FR2022EME056902

PATIENT
  Age: 67 Year
  Sex: Male
  Weight: 96 kg

DRUGS (1)
  1. BELANTAMAB MAFODOTIN [Suspect]
     Active Substance: BELANTAMAB MAFODOTIN
     Indication: Plasma cell myeloma
     Dosage: 200 MG/KG
     Route: 042
     Dates: start: 20210603

REACTIONS (5)
  - Plasma cell myeloma [Fatal]
  - Diabetic metabolic decompensation [Recovering/Resolving]
  - Hypercalcaemia [Unknown]
  - Asthenia [Unknown]
  - Fatigue [Unknown]

NARRATIVE: CASE EVENT DATE: 20210630
